FAERS Safety Report 18978815 (Version 1)
Quarter: 2021Q1

REPORT INFORMATION
  Report Type: Spontaneous
  Country: SI (occurrence: SI)
  Receive Date: 20210308
  Receipt Date: 20210308
  Transmission Date: 20210420
  Serious: Yes (Hospitalization, Other)
  Sender: FDA-Public Use
  Company Number: SI-B.I. PHARMACEUTICALS,INC./RIDGEFIELD-2021-BI-086753

PATIENT
  Age: 64 Year
  Sex: Female

DRUGS (4)
  1. SYNJARDY [Suspect]
     Active Substance: EMPAGLIFLOZIN\METFORMIN HYDROCHLORIDE
     Indication: PRODUCT USED FOR UNKNOWN INDICATION
     Dosage: CONFIRMED BY PHONE THAT THE DOSE OF SYNJARDY WAS 5/1000 MG AND NOT 5/100  MG AS STATED IN THE PRESEN
     Route: 065
  2. DIAPREL [Concomitant]
     Active Substance: GLICLAZIDE
     Indication: PRODUCT USED FOR UNKNOWN INDICATION
     Dosage: 2 TABLETS IN THE MORNING
     Route: 065
  3. PRENEWEL [Concomitant]
     Active Substance: INDAPAMIDE\PERINDOPRIL ERBUMINE
     Indication: PRODUCT USED FOR UNKNOWN INDICATION
     Route: 065
  4. LEVEMIR [Concomitant]
     Active Substance: INSULIN DETEMIR
     Indication: PRODUCT USED FOR UNKNOWN INDICATION
     Dosage: 20 INTERNATIONAL UNITES IN THE EVENING BEFORE BED TIME
     Route: 065

REACTIONS (14)
  - Pyrexia [Unknown]
  - Dehydration [Unknown]
  - Pneumonia [Unknown]
  - Diarrhoea [Unknown]
  - Decreased appetite [Unknown]
  - Cough [Unknown]
  - Abdominal pain [Unknown]
  - Anosmia [Unknown]
  - Euglycaemic diabetic ketoacidosis [Unknown]
  - Myalgia [Unknown]
  - SARS-CoV-2 test positive [Unknown]
  - Nausea [Unknown]
  - Vomiting [Unknown]
  - Ageusia [Unknown]

NARRATIVE: CASE EVENT DATE: 20210129
